FAERS Safety Report 6716355-9 (Version None)
Quarter: 2010Q2

REPORT INFORMATION
  Report Type: 
  Country: None (occurrence: None)
  Receive Date: 20100506
  Receipt Date: 20100506
  Transmission Date: 20101027
  Serious: Yes (Other)
  Sender: FDA-Public Use
  Company Number: None

PATIENT
  Age: 50 Year
  Sex: Female
  Weight: 95.4 kg

DRUGS (16)
  1. WARFARIN SODIUM [Suspect]
     Indication: DEEP VEIN THROMBOSIS
     Dosage: 7.5MG DAILY PO OUT PT DOSE
     Route: 048
  2. ABACAVIR [Concomitant]
  3. APAP TAB [Concomitant]
  4. AZITHROMYCIN [Concomitant]
  5. BUPROPION HCL [Concomitant]
  6. CEFEPIME [Concomitant]
  7. DOCUSATE [Concomitant]
  8. GABAPENTIN [Concomitant]
  9. ASPART [Concomitant]
  10. LACTULOSE [Concomitant]
  11. LAMIVUDINE [Concomitant]
  12. LOPINAVIR AND RITONAVIR [Concomitant]
  13. METOCLOPRAMIDE HYDROCHLORIDE [Concomitant]
  14. RANITIDINE [Concomitant]
  15. SENNA [Concomitant]
  16. SERTRALINE [Concomitant]

REACTIONS (1)
  - INTERNATIONAL NORMALISED RATIO INCREASED [None]
